FAERS Safety Report 11865854 (Version 2)
Quarter: 2015Q4

REPORT INFORMATION
  Report Type: Spontaneous
  Country: JP (occurrence: JP)
  Receive Date: 20151223
  Receipt Date: 20151230
  Transmission Date: 20160305
  Serious: Yes (Other)
  Sender: FDA-Public Use
  Company Number: JP-SA-2015SA216944

PATIENT
  Sex: Female

DRUGS (4)
  1. MYSLEE [Suspect]
     Active Substance: ZOLPIDEM TARTRATE
     Route: 048
  2. DEPAS [Concomitant]
     Active Substance: ETIZOLAM
     Route: 065
  3. FLUNITRAZEPAM [Concomitant]
     Active Substance: FLUNITRAZEPAM
     Route: 065
  4. ERIMIN [Concomitant]
     Active Substance: NIMETAZEPAM
     Route: 065

REACTIONS (3)
  - Crime [Unknown]
  - Intentional overdose [Unknown]
  - Intentional product misuse [Unknown]
